FAERS Safety Report 12798108 (Version 1)
Quarter: 2016Q3

REPORT INFORMATION
  Report Type: Spontaneous
  Country: US (occurrence: US)
  Receive Date: 20160930
  Receipt Date: 20160930
  Transmission Date: 20161109
  Serious: Yes (Other)
  Sender: FDA-Public Use
  Company Number: None

PATIENT
  Age: 42 Year
  Sex: Female
  Weight: 66.23 kg

DRUGS (3)
  1. PARAGARD T 380A [Suspect]
     Active Substance: COPPER
  2. ALBUTEROL INHALER [Concomitant]
     Active Substance: ALBUTEROL
  3. WOMEN^S MULTIVITAMINS [Concomitant]

REACTIONS (9)
  - Malaise [None]
  - Anxiety [None]
  - Disturbance in attention [None]
  - Diarrhoea [None]
  - Nausea [None]
  - Headache [None]
  - Dizziness [None]
  - Palpitations [None]
  - Hypoaesthesia [None]

NARRATIVE: CASE EVENT DATE: 20160902
